FAERS Safety Report 8154416 (Version 2)
Quarter: 2013Q1

REPORT INFORMATION
  Report Type: Spontaneous
  Country: US (occurrence: US)
  Receive Date: 20110923
  Receipt Date: 20130319
  Transmission Date: 20140127
  Serious: Yes (Other)
  Sender: FDA-Public Use
  Company Number: US-JNJFOC-20100803624

PATIENT
  Sex: Male

DRUGS (4)
  1. LEVAQUIN [Suspect]
     Indication: STAPHYLOCOCCAL INFECTION
     Route: 048
  2. LEVAQUIN [Suspect]
     Indication: BACTERIAL INFECTION
     Route: 048
  3. FLONASE [Suspect]
     Indication: SINUSITIS
     Route: 045
  4. RHINOCORT AQUA [Suspect]
     Indication: SINUSITIS
     Route: 045

REACTIONS (6)
  - Epicondylitis [Unknown]
  - Nerve compression [Unknown]
  - Plantar fasciitis [Not Recovered/Not Resolved]
  - Tendon injury [Unknown]
  - Tendonitis [Unknown]
  - Tendon rupture [Unknown]
